FAERS Safety Report 5229616-X (Version None)
Quarter: 2007Q1

REPORT INFORMATION
  Report Type: 
  Country: None (occurrence: None)
  Receive Date: 20070201
  Receipt Date: 20070130
  Transmission Date: 20070707
  Serious: Yes (Hospitalization)
  Sender: FDA-Public Use
  Company Number: 009808

PATIENT
  Age: 22 Year
  Sex: Female
  Weight: 68 kg

DRUGS (4)
  1. CLARAVIS (ISOTRETINOIN) CAPSULE, 30MG [Suspect]
     Indication: ACNE CYSTIC
     Dosage: SEE IMAGE
     Route: 048
     Dates: end: 20061202
  2. CLARAVIS (ISOTRETINOIN) CAPSULE, 30MG [Suspect]
     Indication: ACNE CYSTIC
     Dosage: SEE IMAGE
     Route: 048
     Dates: start: 20060801
  3. SOTRET [Suspect]
     Indication: ACNE CYSTIC
     Dosage: ORAL
     Route: 048
  4. ORAL CONTRACEPTIVE NOS (ORAL CONTRACEPTIVE NOS) [Concomitant]

REACTIONS (3)
  - INCORRECT DOSE ADMINISTERED [None]
  - SUICIDE ATTEMPT [None]
  - WEIGHT INCREASED [None]
